APPROVED DRUG PRODUCT: FLUTICASONE PROPIONATE
Active Ingredient: FLUTICASONE PROPIONATE
Strength: 0.05%
Dosage Form/Route: LOTION;TOPICAL
Application: A090759 | Product #001
Applicant: GLENMARK PHARMACEUTICALS LTD
Approved: May 2, 2011 | RLD: No | RS: No | Type: DISCN